FAERS Safety Report 17653056 (Version 6)
Quarter: 2020Q4

REPORT INFORMATION
  Report Type: Report from Study
  Country: US (occurrence: US)
  Receive Date: 20200409
  Receipt Date: 20201113
  Transmission Date: 20210113
  Serious: Yes (Other)
  Sender: FDA-Public Use
  Company Number: NVSC2020US094272

PATIENT
  Age: 81 Year
  Sex: Female

DRUGS (2)
  1. ENTRESTO [Suspect]
     Active Substance: SACUBITRIL\VALSARTAN
     Dosage: 0.5 DF, BID (1/2 49/51 MG AM AND 1/2 49/51 MG PM)
     Route: 065
  2. ENTRESTO [Suspect]
     Active Substance: SACUBITRIL\VALSARTAN
     Indication: CARDIAC FAILURE
     Dosage: 100 MG, BID (49/51 MG)
     Route: 048
     Dates: start: 202002

REACTIONS (14)
  - Weight increased [Unknown]
  - Limb injury [Unknown]
  - Insomnia [Not Recovered/Not Resolved]
  - Peripheral swelling [Recovered/Resolved]
  - Impaired healing [Recovered/Resolved]
  - Amnesia [Unknown]
  - Dyspnoea [Unknown]
  - Fatigue [Unknown]
  - Malaise [Unknown]
  - Diabetes mellitus [Unknown]
  - Blood glucose increased [Recovered/Resolved with Sequelae]
  - Pain [Unknown]
  - Haemorrhage [Recovered/Resolved]
  - Wrong technique in product usage process [Unknown]

NARRATIVE: CASE EVENT DATE: 202007
